FAERS Safety Report 5271129-3 (Version None)
Quarter: 2007Q1

REPORT INFORMATION
  Report Type: 
  Country: None (occurrence: None)
  Receive Date: 20070315
  Receipt Date: 20070305
  Transmission Date: 20070707
  Serious: Yes (Hospitalization)
  Sender: FDA-Public Use
  Company Number: 2007BL000686

PATIENT
  Age: 63 Year
  Sex: Female

DRUGS (16)
  1. PREDNISOLONE SODIUM PHOSPHATE [Suspect]
     Indication: DRUG USE FOR UNKNOWN INDICATION
     Dosage: 5 MILLIGRAMS; DAILY
  2. ASPIRIN [Suspect]
     Dosage: 75 MILLIGRAMS; DAILY; ORAL
     Route: 048
  3. MELOXICAM [Suspect]
     Indication: RHEUMATOID ARTHRITIS
     Dosage: 15 MILLIGRAMS; DAILY; ORAL
     Route: 048
     Dates: end: 20070130
  4. RISEDRONATE SODIUM [Suspect]
     Dosage: 35 MILLIGRAMS; WEEKLY
  5. ALIMEMAZINE [Concomitant]
  6. ATORVASTATIN CALCIUM [Concomitant]
  7. ATROVENT [Concomitant]
  8. CO-CODAMOL [Concomitant]
  9. GTN-S [Concomitant]
  10. ISOSORBIDE MONONITRATE [Concomitant]
  11. NICORANDIL [Concomitant]
  12. OMEPRAZOLE [Concomitant]
  13. SALBUTAMOL [Concomitant]
  14. SANDOCAL [Concomitant]
  15. SERETIDE [Concomitant]
  16. DILTIAZEM HCL [Concomitant]

REACTIONS (5)
  - BARRETT'S OESOPHAGUS [None]
  - CHEST PAIN [None]
  - DUODENAL ULCER [None]
  - DUODENITIS [None]
  - HELICOBACTER PYLORI IDENTIFICATION TEST POSITIVE [None]
